FAERS Safety Report 8775933 (Version 1)
Quarter: 2012Q4

REPORT INFORMATION
  Report Type: 
  Country: DE (occurrence: DE)
  Receive Date: 20120910
  Receipt Date: 20120910
  Transmission Date: 20130627
  Serious: Yes (Other)
  Sender: FDA-Public Use
  Company Number: DE-ROCHE-1116094

PATIENT
  Age: 58 Year
  Sex: Female

DRUGS (3)
  1. LUCENTIS [Suspect]
     Indication: MACULAR OEDEMA
     Route: 050
     Dates: start: 20120503
  2. LUCENTIS [Suspect]
     Indication: RETINAL VEIN OCCLUSION
  3. XALATAN [Concomitant]
     Route: 065
     Dates: start: 201204

REACTIONS (1)
  - Macular oedema [Not Recovered/Not Resolved]
